FAERS Safety Report 8513793-9 (Version None)
Quarter: 2012Q2

REPORT INFORMATION
  Report Type: 
  Country: None (occurrence: None)
  Receive Date: 20120406
  Receipt Date: 20110114
  Transmission Date: 20120825
  Serious: Yes (Disabling, Other)
  Sender: FDA-Public Use
  Company Number: PHHY2011US01379

PATIENT
  Age: 73 Year
  Sex: Female
  Weight: 72.6 kg

DRUGS (6)
  1. METOPROLOL TARTRATE [Concomitant]
  2. LISINOPRIL [Concomitant]
  3. TASIGNA [Suspect]
     Indication: CHRONIC MYELOID LEUKAEMIA
     Dosage: 200 MG, BID, ORAL, 200 MG, BID, 400 MG, BID, ORAL
     Route: 048
     Dates: start: 20100705
  4. TASIGNA [Suspect]
     Indication: CHRONIC MYELOID LEUKAEMIA
     Dosage: 200 MG, BID, ORAL, 200 MG, BID, 400 MG, BID, ORAL
     Route: 048
     Dates: start: 20100524, end: 20100701
  5. TASIGNA [Suspect]
     Indication: CHRONIC MYELOID LEUKAEMIA
     Dosage: 200 MG, BID, ORAL, 200 MG, BID, 400 MG, BID, ORAL
     Route: 048
     Dates: start: 20100518
  6. AMFLEW [Concomitant]

REACTIONS (6)
  - RENAL FAILURE CHRONIC [None]
  - RASH [None]
  - CHEST PAIN [None]
  - INFLUENZA [None]
  - FATIGUE [None]
  - DIARRHOEA [None]
